FAERS Safety Report 5863968-2 (Version None)
Quarter: 2008Q3

REPORT INFORMATION
  Report Type: 
  Country: None (occurrence: None)
  Receive Date: 20080829
  Receipt Date: 20080821
  Transmission Date: 20090109
  Serious: Yes (Other)
  Sender: FDA-Public Use
  Company Number: PHHY2008DE18871

PATIENT
  Sex: Male

DRUGS (4)
  1. ZOMETA [Suspect]
     Indication: PROSTATE CANCER
     Dosage: EVERY 4 WEEKS
     Route: 042
     Dates: start: 20061001
  2. SIMVASTATIN [Concomitant]
  3. ASS + C-RATIOPHARM [Concomitant]
  4. SELENASE [Concomitant]

REACTIONS (3)
  - CARDIAC FIBRILLATION [None]
  - CARDIAC OUTPUT DECREASED [None]
  - LOOSE TOOTH [None]
